FAERS Safety Report 4463875-6 (Version None)
Quarter: 2004Q3

REPORT INFORMATION
  Report Type: 
  Country: None (occurrence: None)
  Receive Date: 20040929
  Receipt Date: 20040917
  Transmission Date: 20050211
  Serious: Yes (Other)
  Sender: FDA-Public Use
  Company Number: 2004068343

PATIENT
  Sex: Female

DRUGS (3)
  1. NEURONTIN [Suspect]
     Indication: NEUROPATHY
     Dosage: ORAL
     Route: 048
     Dates: start: 20010101
  2. ATROVASTATIN CALCIUM (ATORVASTATIN CALCIUM) [Concomitant]
  3. BROMAZEPAM (BROMAZEPAM) [Concomitant]

REACTIONS (5)
  - CONDITION AGGRAVATED [None]
  - CONFUSIONAL STATE [None]
  - NEUROPATHY [None]
  - PAIN [None]
  - PYREXIA [None]
